FAERS Safety Report 9274337 (Version 1)
Quarter: 2013Q2

REPORT INFORMATION
  Report Type: Spontaneous
  Country: PL (occurrence: PL)
  Receive Date: 20130506
  Receipt Date: 20130506
  Transmission Date: 20140414
  Serious: Yes (Other)
  Sender: FDA-Public Use
  Company Number: CHNY2013PL001061

PATIENT
  Age: 34 Year
  Sex: Male

DRUGS (1)
  1. XYLOMETAZOLINE HYDROCHLORIDE [Suspect]
     Dosage: UNK
     Route: 045

REACTIONS (2)
  - Drug dependence [Unknown]
  - Intentional drug misuse [Unknown]
